FAERS Safety Report 8240343-7 (Version None)
Quarter: 2012Q1

REPORT INFORMATION
  Report Type: 
  Country: None (occurrence: None)
  Receive Date: 20120328
  Receipt Date: 20120323
  Transmission Date: 20120608
  Serious: Yes (Other)
  Sender: FDA-Public Use
  Company Number: US-TEVA-328658USA

PATIENT
  Sex: Female
  Weight: 94.432 kg

DRUGS (3)
  1. AZILECT [Suspect]
     Indication: PARKINSON'S DISEASE
     Dosage: 1 OR 2 MG VS. PLACEBO
     Route: 048
     Dates: start: 20060213
  2. AZILECT [Suspect]
     Dosage: 1 MILLIGRAM;
     Route: 048
     Dates: start: 20091109
  3. DOXEPIN HCL [Concomitant]
     Indication: PRURITUS
     Dosage: 50 MILLIGRAM;
     Route: 048
     Dates: start: 20100302

REACTIONS (1)
  - MANTLE CELL LYMPHOMA [None]
